FAERS Safety Report 14586071 (Version 3)
Quarter: 2018Q2

REPORT INFORMATION
  Report Type: Spontaneous
  Country: US (occurrence: US)
  Receive Date: 20180301
  Receipt Date: 20180607
  Transmission Date: 20180711
  Serious: No
  Sender: FDA-Public Use
  Company Number: US-PFIZER INC-2018079354

PATIENT
  Age: 69 Year
  Sex: Female
  Weight: 87.75 kg

DRUGS (1)
  1. PRISTIQ EXTENDED-RELEASE [Suspect]
     Active Substance: DESVENLAFAXINE SUCCINATE
     Indication: DEPRESSION
     Dosage: UNK
     Route: 048
     Dates: start: 2013

REACTIONS (4)
  - Drug intolerance [Not Recovered/Not Resolved]
  - Emotional disorder [Recovered/Resolved]
  - Drug hypersensitivity [Not Recovered/Not Resolved]
  - Bradyphrenia [Recovered/Resolved]

NARRATIVE: CASE EVENT DATE: 2013
